FAERS Safety Report 10671292 (Version 1)
Quarter: 2014Q4

REPORT INFORMATION
  Report Type: Spontaneous
  Country: None (occurrence: None)
  Receive Date: 20141222
  Receipt Date: 20141222
  Transmission Date: 20150529
  Serious: Yes (Disabling)
  Sender: FDA-Public Use
  Company Number: None

PATIENT
  Age: 49 Year
  Sex: Female
  Weight: 68.04 kg

DRUGS (2)
  1. LEVAQUIN [Suspect]
     Active Substance: LEVOFLOXACIN
     Indication: PROPHYLAXIS
     Dosage: 1 IV DOSE ONCE PROPHYLAXIS
     Route: 042
     Dates: start: 20140502
  2. LEVAQUIN [Suspect]
     Active Substance: LEVOFLOXACIN
     Indication: ENDOSCOPIC ULTRASOUND
     Dosage: 1 IV DOSE ONCE PROPHYLAXIS
     Route: 042
     Dates: start: 20140502

REACTIONS (1)
  - Neuropathy peripheral [None]

NARRATIVE: CASE EVENT DATE: 20140717
